FAERS Safety Report 8315795-4 (Version None)
Quarter: 2012Q2

REPORT INFORMATION
  Report Type: 
  Country: None (occurrence: None)
  Receive Date: 20120427
  Receipt Date: 20120419
  Transmission Date: 20120825
  Serious: Yes (Other)
  Sender: FDA-Public Use
  Company Number: JP-SP-2012-03916

PATIENT
  Age: 54 Year
  Sex: Female

DRUGS (1)
  1. TICE BCG [Suspect]
     Indication: BLADDER CANCER
     Route: 043

REACTIONS (5)
  - REITER'S SYNDROME [None]
  - CONJUNCTIVITIS [None]
  - POLYARTHRITIS [None]
  - HAEMATURIA [None]
  - URETHRITIS [None]
